FAERS Safety Report 5167431-6 (Version None)
Quarter: 2006Q4

REPORT INFORMATION
  Report Type: 
  Country: None (occurrence: None)
  Receive Date: 20061130
  Receipt Date: 20061123
  Transmission Date: 20070319
  Serious: Yes (Life-Threatening, Hospitalization, Disabling)
  Sender: FDA-Public Use
  Company Number: 2006-03030

PATIENT
  Age: 60 Year
  Sex: Female
  Weight: 96 kg

DRUGS (7)
  1. VELCADE [Suspect]
     Indication: MULTIPLE MYELOMA
     Dosage: INTRAVENOUS
     Route: 042
     Dates: start: 20060918
  2. DEXAMETHASONE [Suspect]
     Indication: MULTIPLE MYELOMA
     Dosage: ORAL
     Route: 048
     Dates: start: 20060918
  3. GLIMEPIRIDE [Concomitant]
  4. METFORMIN HCL [Concomitant]
  5. CLODRONATE DISODIUM (CLODRONATE DISODIUM) [Concomitant]
  6. SIMVASTATIN [Concomitant]
  7. PROTAPHANE MC (INSULIN INJECTION, ISOPHANE) [Concomitant]

REACTIONS (4)
  - HEPATITIS [None]
  - PLEURITIC PAIN [None]
  - PULMONARY EMBOLISM [None]
  - PYREXIA [None]
